FAERS Safety Report 11024671 (Version 1)
Quarter: 2015Q2

REPORT INFORMATION
  Report Type: Spontaneous
  Country: US (occurrence: None)
  Receive Date: 20150410
  Receipt Date: 20150410
  Transmission Date: 20150821
  Serious: Yes (Other)
  Sender: FDA-Public Use
  Company Number: US-H14001-15-00521

PATIENT
  Age: 40 Year
  Sex: Female

DRUGS (2)
  1. PREDNISONE (PREDNISONE) (UNKNOWN) (PREDNISONE) [Suspect]
     Active Substance: PREDNISONE
     Indication: COLITIS
  2. PREDNISONE (PREDNISONE) (UNKNOWN) (PREDNISONE) [Suspect]
     Active Substance: PREDNISONE
     Indication: ENTERITIS

REACTIONS (8)
  - Substance-induced psychotic disorder [None]
  - Neuropsychiatric syndrome [None]
  - Condition aggravated [None]
  - Ulcer [None]
  - Disease recurrence [None]
  - Proctitis [None]
  - Colitis [None]
  - Abscess [None]
